FAERS Safety Report 7392046-9 (Version None)
Quarter: 2011Q2

REPORT INFORMATION
  Report Type: 
  Country: None (occurrence: None)
  Receive Date: 20110404
  Receipt Date: 20110323
  Transmission Date: 20111010
  Serious: No
  Sender: FDA-Public Use
  Company Number: US-ROXANE LABORATORIES, INC.-2011-RO-00163RO

PATIENT
  Sex: Male

DRUGS (2)
  1. ASPIRIN [Concomitant]
  2. FLUTICASONE PROPIONATE [Suspect]
     Route: 045
     Dates: start: 20110208, end: 20110208

REACTIONS (1)
  - PRODUCT TASTE ABNORMAL [None]
